FAERS Safety Report 7930990-1 (Version None)
Quarter: 2011Q4

REPORT INFORMATION
  Report Type: 
  Country: None (occurrence: None)
  Receive Date: 20111121
  Receipt Date: 20111116
  Transmission Date: 20120403
  Serious: Yes (Death)
  Sender: FDA-Public Use
  Company Number: US-CELGENEUS-163-21880-11112458

PATIENT
  Sex: Male

DRUGS (4)
  1. REVLIMID [Suspect]
     Indication: POEMS SYNDROME
     Route: 048
  2. CYCLOPHOSPHAMIDE [Concomitant]
     Indication: POEMS SYNDROME
     Route: 065
  3. CORTICOSTEROIDS [Concomitant]
     Indication: POEMS SYNDROME
     Route: 065
  4. BEVACIZUMAB [Concomitant]
     Route: 065

REACTIONS (1)
  - POEMS SYNDROME [None]
